FAERS Safety Report 4313010-X (Version None)
Quarter: 2004Q1

REPORT INFORMATION
  Report Type: 
  Country: None (occurrence: None)
  Receive Date: 20040308
  Receipt Date: 20040224
  Transmission Date: 20041129
  Serious: Yes (Hospitalization)
  Sender: FDA-Public Use
  Company Number: 200412501GDDC

PATIENT
  Age: 64 Year
  Sex: Female
  Weight: 68.3 kg

DRUGS (7)
  1. CAMPTOSAR [Suspect]
     Indication: NON-SMALL CELL LUNG CANCER
     Route: 042
     Dates: start: 20031217
  2. DOCETAXEL [Suspect]
     Indication: NON-SMALL CELL LUNG CANCER
     Route: 042
     Dates: start: 20031217
  3. BETAPACE [Concomitant]
  4. LANOXIN [Concomitant]
  5. FUROSEMIDE [Concomitant]
  6. DIFLUCAN [Concomitant]
  7. SOTALOL HCL [Concomitant]

REACTIONS (8)
  - ASTHENIA [None]
  - BLOOD ALKALINE PHOSPHATASE INCREASED [None]
  - DEHYDRATION [None]
  - DIABETES MELLITUS NON-INSULIN-DEPENDENT [None]
  - DISEASE PROGRESSION [None]
  - EMOTIONAL DISTRESS [None]
  - PAIN [None]
  - PERFORMANCE STATUS DECREASED [None]
